FAERS Safety Report 9971872 (Version 2)
Quarter: 2014Q1

REPORT INFORMATION
  Report Type: Report from Study
  Country: DE (occurrence: DE)
  Receive Date: 20140306
  Receipt Date: 20140318
  Transmission Date: 20141002
  Serious: Yes (Hospitalization)
  Sender: FDA-Public Use
  Company Number: DE-ROCHE-1354861

PATIENT
  Age: 57 Year
  Sex: Female

DRUGS (4)
  1. TRASTUZUMAB [Suspect]
     Indication: HER-2 POSITIVE BREAST CANCER
     Dosage: LOADING DOSE.
     Route: 042
     Dates: start: 20130715
  2. TRASTUZUMAB [Suspect]
     Dosage: MAINTANANCE DOSE.?LAST DOSE PRIOR TO SAE: 21/FEB/2014.
     Route: 042
  3. PERTUZUMAB [Suspect]
     Indication: HER-2 POSITIVE BREAST CANCER
     Dosage: LOADING DOSE
     Route: 042
     Dates: start: 20130715
  4. PERTUZUMAB [Suspect]
     Dosage: MAINTAINANCE DOSE.
     Route: 042

REACTIONS (1)
  - Concussion [Recovered/Resolved]
